FAERS Safety Report 7747365-0 (Version None)
Quarter: 2011Q3

REPORT INFORMATION
  Report Type: 
  Country: None (occurrence: None)
  Receive Date: 20110913
  Receipt Date: 20110831
  Transmission Date: 20111222
  Serious: Yes (Hospitalization)
  Sender: FDA-Public Use
  Company Number: US-GLAXOSMITHKLINE-A0897708A

PATIENT
  Age: 66 Year
  Sex: Male
  Weight: 107.3 kg

DRUGS (8)
  1. TOPROL-XL [Concomitant]
  2. SYNTHROID [Concomitant]
  3. CLONIDINE [Concomitant]
  4. BENICAR [Concomitant]
  5. PRAVACHOL [Concomitant]
  6. AVANDARYL [Suspect]
     Indication: DIABETES MELLITUS
     Route: 048
     Dates: start: 20061025, end: 20100209
  7. MOBIC [Concomitant]
  8. ALLEGRA [Concomitant]

REACTIONS (1)
  - CEREBROVASCULAR ACCIDENT [None]
